FAERS Safety Report 6067645-7 (Version None)
Quarter: 2009Q1

REPORT INFORMATION
  Report Type: 
  Country: None (occurrence: None)
  Receive Date: 20090205
  Receipt Date: 20090204
  Transmission Date: 20090719
  Serious: Yes (Life-Threatening, Hospitalization)
  Sender: FDA-Public Use
  Company Number: US-ROXANE LABORATORIES, INC.-2009-RO-00113RO

PATIENT
  Age: 27 Year
  Sex: Male

DRUGS (3)
  1. ROXICET [Suspect]
  2. ENDOCET [Suspect]
  3. OXYCODONE HCL [Suspect]
     Indication: FEMUR FRACTURE

REACTIONS (4)
  - ABNORMAL LOSS OF WEIGHT [None]
  - DRUG ABUSE [None]
  - DRUG DEPENDENCE [None]
  - LOBAR PNEUMONIA [None]
